FAERS Safety Report 8271024-1 (Version None)
Quarter: 2012Q2

REPORT INFORMATION
  Report Type: 
  Country: None (occurrence: None)
  Receive Date: 20120410
  Receipt Date: 20120329
  Transmission Date: 20120825
  Serious: Yes (Other)
  Sender: FDA-Public Use
  Company Number: US-SANOFI-AVENTIS-2012SA022204

PATIENT
  Age: 60 Year
  Sex: Female
  Weight: 68 kg

DRUGS (8)
  1. POTASSIUM [Concomitant]
  2. PLAVIX [Suspect]
     Route: 048
     Dates: start: 20040101
  3. TRIAMTERENE AND HYDROCHLOROTHIAZIDE [Concomitant]
  4. ATENOLOL [Concomitant]
  5. PREMARIN [Concomitant]
  6. PANTOPRAZOLE [Concomitant]
  7. PLAVIX [Suspect]
     Indication: STENT PLACEMENT
     Route: 048
     Dates: start: 20040101
  8. ASPIRIN [Suspect]

REACTIONS (13)
  - HYPERTENSION [None]
  - VISUAL IMPAIRMENT [None]
  - CONTUSION [None]
  - SURGERY [None]
  - GLAUCOMA [None]
  - BENIGN BREAST NEOPLASM [None]
  - HERNIA REPAIR [None]
  - EYE OPERATION [None]
  - OPEN WOUND [None]
  - RETINOSCHISIS [None]
  - HEPATITIS C [None]
  - TRIGGER FINGER [None]
  - HAEMORRHAGE [None]
